FAERS Safety Report 16019515 (Version 4)
Quarter: 2024Q3

REPORT INFORMATION
  Report Type: Spontaneous
  Country: US (occurrence: US)
  Receive Date: 20190228
  Receipt Date: 20240705
  Transmission Date: 20241017
  Serious: No
  Sender: NOVARTIS
  Company Number: PHEH2019US008516

PATIENT
  Sex: Male

DRUGS (2)
  1. AFINITOR [Suspect]
     Active Substance: EVEROLIMUS
     Indication: Carcinoid syndrome
     Dosage: UNK UNK, QD
     Route: 048
  2. ERYTHROMYCIN ESTOLATE [Suspect]
     Active Substance: ERYTHROMYCIN ESTOLATE
     Indication: Carcinoid syndrome
     Dosage: 250 MG, TID
     Route: 048
     Dates: start: 20180905

REACTIONS (6)
  - Depression [Unknown]
  - Abdominal pain [Unknown]
  - Headache [Unknown]
  - Insomnia [Unknown]
  - Diarrhoea [Unknown]
  - Wrong technique in product usage process [Unknown]
